FAERS Safety Report 8814140 (Version 1)
Quarter: 2012Q4

REPORT INFORMATION
  Report Type: Spontaneous
  Country: US (occurrence: None)
  Receive Date: 20120925
  Receipt Date: 20120925
  Transmission Date: 20130627
  Serious: Yes (Hospitalization)
  Sender: FDA-Public Use
  Company Number: B0831440A

PATIENT
  Age: 51 Year
  Sex: Female

DRUGS (3)
  1. PAROXETINE HYDROCHLORIDE [Suspect]
     Indication: PSYCHOTIC DISORDER
     Dosage: 30 MG/ PER DAY/ UNKNOWN
  2. SERTRALINE [Suspect]
     Indication: PSYCHOTIC DISORDER
     Dosage: 100 MG/ PER DAY/ UNKNOWN
  3. BORNAPRINE HYDROCHLORIDE [Suspect]
     Indication: PANIC DISORDER
     Dosage: 8 MG/ PER DAY/ UNKNOWN

REACTIONS (6)
  - Neuroleptic malignant syndrome [None]
  - Muscle contractions involuntary [None]
  - Mental status changes [None]
  - Urinary incontinence [None]
  - Hyperhidrosis [None]
  - Leukocytosis [None]
